FAERS Safety Report 9100972 (Version 2)
Quarter: 2013Q1

REPORT INFORMATION
  Report Type: Spontaneous
  Country: JP (occurrence: JP)
  Receive Date: 20130215
  Receipt Date: 20130312
  Transmission Date: 20140127
  Serious: Yes (Other)
  Sender: FDA-Public Use
  Company Number: JP-ROCHE-1191633

PATIENT
  Age: 79 Year
  Sex: Female
  Weight: 53 kg

DRUGS (19)
  1. TAMIFLU [Suspect]
     Indication: INFLUENZA
     Route: 048
     Dates: start: 20130201, end: 20130206
  2. MEVALOTIN [Concomitant]
     Dosage: DOSAGE IS UNCERTAIN
     Route: 065
  3. NU-LOTAN [Concomitant]
     Dosage: DOSAGE IS UNCERTAIN.
     Route: 065
  4. METHYCOBAL [Concomitant]
     Dosage: DOSAGE IS UNCERTAIN.
     Route: 065
  5. MAINTATE [Concomitant]
     Dosage: DOSAGE IS UNCERTAIN.
     Route: 065
  6. PREDONINE [Concomitant]
     Dosage: DOSAGE IS UNCERTAIN.
     Route: 065
  7. GASTER [Concomitant]
     Dosage: DOSAGE IS UNCERTAIN.
     Route: 065
  8. BAYASPIRIN [Concomitant]
     Dosage: DOSAGE IS UNCERTAIN.
     Route: 065
  9. KINEDAK [Concomitant]
     Dosage: DOSAGE IS UNCERTAIN.
     Route: 065
  10. REPAGLINIDE [Concomitant]
     Dosage: DOSAGE IS UNCERTAIN.
     Route: 065
  11. PRAZAXA [Concomitant]
     Dosage: DOSAGE IS UNCERTAIN.
     Route: 065
  12. TAKEPRON [Concomitant]
     Dosage: DOSAGE IS UNCERTAIN.
     Route: 065
  13. HERBESSER [Concomitant]
     Dosage: DOSAGE IS UNCERTAIN.
     Route: 065
  14. ADALAT [Concomitant]
     Dosage: DOSAGE IS UNCERTAIN.
     Route: 065
  15. FASTIC [Concomitant]
     Dosage: DOSAGE IS UNCERTAIN.
     Route: 065
  16. JUVELA N [Concomitant]
     Dosage: DOSAGE IS UNCERTAIN.
     Route: 065
  17. ALDACTONE A [Concomitant]
     Route: 065
  18. DEPAS [Concomitant]
     Route: 065
  19. REPAGLINIDE [Concomitant]

REACTIONS (1)
  - Restlessness [Recovered/Resolved]
